FAERS Safety Report 20883306 (Version 2)
Quarter: 2022Q2

REPORT INFORMATION
  Report Type: Spontaneous
  Country: US (occurrence: None)
  Receive Date: 20220527
  Receipt Date: 20220530
  Transmission Date: 20220721
  Serious: Yes (Death)
  Sender: FDA-Public Use
  Company Number: US-ROCHE-3103387

PATIENT
  Age: 82 Year
  Sex: Male

DRUGS (1)
  1. RITUXAN [Suspect]
     Active Substance: RITUXIMAB
     Indication: Splenic marginal zone lymphoma
     Dosage: STARTED IN 2007 OR 2008 ;ONGOING: NO
     Route: 042

REACTIONS (1)
  - Splenic marginal zone lymphoma recurrent [Fatal]

NARRATIVE: CASE EVENT DATE: 20100701
